FAERS Safety Report 17492208 (Version 1)
Quarter: 2020Q1

REPORT INFORMATION
  Report Type: Spontaneous
  Country: US (occurrence: US)
  Receive Date: 20200303
  Receipt Date: 20200303
  Transmission Date: 20200409
  Serious: No
  Sender: FDA-Public Use
  Company Number: US-NOVOPROD-642228

PATIENT
  Sex: Female

DRUGS (1)
  1. VICTOZA [Suspect]
     Active Substance: LIRAGLUTIDE
     Indication: DIABETES MELLITUS
     Dosage: ^5 CLICKS (APPROX. 0.3MG)^
     Route: 058

REACTIONS (2)
  - Malaise [Recovered/Resolved]
  - Wrong technique in product usage process [Unknown]
